FAERS Safety Report 9054794 (Version 1)
Quarter: 2013Q1

REPORT INFORMATION
  Report Type: Spontaneous
  Country: US (occurrence: US)
  Receive Date: 20130208
  Receipt Date: 20130208
  Transmission Date: 20140127
  Serious: No
  Sender: FDA-Public Use
  Company Number: PHEH2012US022651

PATIENT
  Sex: Female

DRUGS (1)
  1. TASIGNA [Suspect]
     Dosage: UNK

REACTIONS (5)
  - Nausea [Recovered/Resolved]
  - Exposure during pregnancy [Unknown]
  - Platelet count increased [Recovered/Resolved]
  - Fatigue [Recovered/Resolved]
  - Normal newborn [Unknown]
